FAERS Safety Report 21165180 (Version 1)
Quarter: 2022Q3

REPORT INFORMATION
  Report Type: Spontaneous
  Country: IT (occurrence: IT)
  Receive Date: 20220803
  Receipt Date: 20220803
  Transmission Date: 20221026
  Serious: Yes (Other)
  Sender: FDA-Public Use
  Company Number: IT-AUROBINDO-AUR-APL-2022-030713

PATIENT
  Age: 32 Year
  Sex: Male
  Weight: 125 kg

DRUGS (4)
  1. PAROXETINE [Suspect]
     Active Substance: PAROXETINE
     Indication: Anxiety
     Dosage: UNK
     Route: 048
     Dates: start: 20190501
  2. PERPHENAZINE [Suspect]
     Active Substance: PERPHENAZINE
     Indication: Anxiety
     Dosage: 4 MILLIGRAM
     Route: 048
     Dates: start: 20190501
  3. PERPHENAZINE [Suspect]
     Active Substance: PERPHENAZINE
     Indication: Panic attack
  4. PERPHENAZINE [Suspect]
     Active Substance: PERPHENAZINE
     Indication: Product use in unapproved therapeutic environment

REACTIONS (2)
  - Loss of libido [Not Recovered/Not Resolved]
  - Erectile dysfunction [Not Recovered/Not Resolved]

NARRATIVE: CASE EVENT DATE: 20190501
